FAERS Safety Report 7095674 (Version 5)
Quarter: 2015Q1

REPORT INFORMATION
  Report Type: Report from Study
  Country: JP (occurrence: JP)
  Receive Date: 20090825
  Receipt Date: 20150114
  Transmission Date: 20150721
  Serious: Yes (Hospitalization)
  Sender: FDA-Public Use
  Company Number: JP-ROCHE-651204

PATIENT
  Age: 75 Year
  Sex: Male
  Weight: 50.4 kg

DRUGS (11)
  1. CISPLATIN. [Suspect]
     Active Substance: CISPLATIN
     Indication: GASTRIC CANCER
     Dosage: DOSE PRIOR TO SAE:17 OCTOBER 2008,FORM: INFUSION. FREQUENCY:DAY1 EVERY THREE WEEKS, DOSE:80 MG/M2
     Route: 042
     Dates: start: 20080924, end: 20081017
  2. POLAPREZINC [Concomitant]
     Active Substance: POLAPREZINC
     Route: 065
  3. HEPARINOID [Concomitant]
     Active Substance: CHONDROITIN SULFATE (BOVINE)
     Route: 065
  4. URSODEOXYCHOLIC ACID [Concomitant]
     Active Substance: URSODIOL
     Route: 065
  5. BENZBROMARONE [Concomitant]
     Active Substance: BENZBROMARONE
     Route: 065
  6. PYRIDOXAL PHOSPHATE [Concomitant]
     Active Substance: PYRIDOXAL PHOSPHATE
     Dosage: DRUG; PYRIDOXAL PHOSPHATE HYDRATE
     Route: 065
  7. BETAMETHASONE DIPROPIONATE. [Concomitant]
     Active Substance: BETAMETHASONE DIPROPIONATE
     Route: 065
  8. CAPECITABINE. [Suspect]
     Active Substance: CAPECITABINE
     Indication: GASTRIC CANCER
     Dosage: FREQUENCY: BID.TWICE DAILY FOR 14 DAYS EVERY 3 WEEKS, DOSE: 2000 MG/M2, LAST DOSE: 18 AUG 09
     Route: 048
     Dates: start: 20080924, end: 20090818
  9. SODIUM GUALENATE [Concomitant]
     Active Substance: SODIUM GUALENATE
     Dosage: DRUG: SODIUM GUALENATE HYDRATE
     Route: 065
  10. FUROSEMIDE. [Concomitant]
     Active Substance: FUROSEMIDE
     Route: 065
  11. BEVACIZUMAB [Suspect]
     Active Substance: BEVACIZUMAB
     Indication: GASTRIC CANCER
     Dosage: FREQUENCY: EVERY 3 WEEKS, ON DAY 1 OF CYCLE 1, FORM: INFUSION, LAST DOSE PRIOR TO SAE: 13 AUG 09
     Route: 042

REACTIONS (3)
  - Dehydration [Recovered/Resolved]
  - Interstitial lung disease [Recovering/Resolving]
  - Pneumonia bacterial [Recovered/Resolved]

NARRATIVE: CASE EVENT DATE: 20090818
